FAERS Safety Report 11614732 (Version 1)
Quarter: 2015Q4

REPORT INFORMATION
  Report Type: Spontaneous
  Country: US (occurrence: None)
  Receive Date: 20151008
  Receipt Date: 20151008
  Transmission Date: 20160304
  Serious: Yes (Other)
  Sender: FDA-Public Use
  Company Number: None

PATIENT
  Age: 43 Year
  Sex: Male

DRUGS (2)
  1. SOVALDI [Suspect]
     Active Substance: SOFOSBUVIR
     Route: 048
     Dates: start: 20150724
  2. RIBAVIRIN. [Concomitant]
     Active Substance: RIBAVIRIN

REACTIONS (5)
  - Pain [None]
  - Dysphagia [None]
  - Mastication disorder [None]
  - Neck pain [None]
  - Pain in jaw [None]

NARRATIVE: CASE EVENT DATE: 20150915
